FAERS Safety Report 24241915 (Version 1)
Quarter: 2024Q3

REPORT INFORMATION
  Report Type: Report from Study
  Country: US (occurrence: US)
  Receive Date: 20240823
  Receipt Date: 20240823
  Transmission Date: 20241017
  Serious: Yes (Disabling, Other)
  Sender: JOHNSON AND JOHNSON
  Company Number: US-JNJFOC-20240845203

PATIENT
  Age: 69 Year
  Sex: Female
  Weight: 72.64 kg

DRUGS (3)
  1. RYBREVANT [Suspect]
     Active Substance: AMIVANTAMAB-VMJW
     Indication: Non-small cell lung cancer
     Dosage: THERAPY START DATE: FEB-2024/MAR-2024?THERAPY END DATE: FEB-2024/MAR-2024
     Route: 042
     Dates: start: 2024, end: 2024
  2. PEMETREXED [Concomitant]
     Active Substance: PEMETREXED
     Indication: Non-small cell lung cancer
     Dosage: START DATE- FEB/MARCH 2024
     Dates: start: 2024, end: 202405
  3. CARBOPLATIN [Concomitant]
     Active Substance: CARBOPLATIN
     Indication: Non-small cell lung cancer
     Dosage: START DATE- FEB/MARCH 2024
     Dates: start: 2024, end: 202405

REACTIONS (4)
  - Skin reaction [Not Recovered/Not Resolved]
  - Alopecia [Not Recovered/Not Resolved]
  - Skin exfoliation [Not Recovered/Not Resolved]
  - Intentional product use issue [Unknown]

NARRATIVE: CASE EVENT DATE: 20240101
